FAERS Safety Report 11977080 (Version 1)
Quarter: 2016Q1

REPORT INFORMATION
  Report Type: Spontaneous
  Country: IT (occurrence: IT)
  Receive Date: 20160129
  Receipt Date: 20160129
  Transmission Date: 20160526
  Serious: Yes (Hospitalization)
  Sender: FDA-Public Use
  Company Number: IT-GLAXOSMITHKLINE-IT2016GSK011383

PATIENT
  Age: 1 Year
  Sex: Male

DRUGS (3)
  1. FLUTICASONE PROPIONATE. [Suspect]
     Active Substance: FLUTICASONE PROPIONATE
     Indication: WHEEZING
     Dosage: 100 UG, BID
     Dates: start: 20141001
  2. SALBUTAMOL [Concomitant]
     Active Substance: ALBUTEROL
     Dosage: UNK, PRN
  3. FLUTICASONE PROPIONATE. [Suspect]
     Active Substance: FLUTICASONE PROPIONATE
     Dosage: 50 UG, UNK

REACTIONS (6)
  - Hyperglycaemia [Recovered/Resolved]
  - Agitation [Unknown]
  - Alkalosis [Unknown]
  - Polyuria [Unknown]
  - Glycosuria [Unknown]
  - Ill-defined disorder [Unknown]
